FAERS Safety Report 7384809-0 (Version None)
Quarter: 2011Q1

REPORT INFORMATION
  Report Type: 
  Country: None (occurrence: None)
  Receive Date: 20110330
  Receipt Date: 20100921
  Transmission Date: 20110831
  Serious: Yes (Other)
  Sender: FDA-Public Use
  Company Number: US-BAYER-201021130NA

PATIENT
  Sex: Female
  Weight: 82.993 kg

DRUGS (5)
  1. YAZ [Suspect]
     Indication: PRODUCT USED FOR UNKNOWN INDICATION
     Route: 048
     Dates: start: 20080401
  2. YASMIN [Suspect]
     Indication: POLYCYSTIC OVARIES
     Dosage: UNK UNK, UNK
     Route: 048
     Dates: start: 20070501, end: 20091201
  3. SPIRONOLACTONE [Concomitant]
     Dosage: UNK
     Dates: start: 20080901
  4. UNCODEABLE ^UNCLASSIFIABLE^ [Concomitant]
     Indication: ANTIOXIDANT THERAPY
  5. OCELLA [Suspect]
     Indication: POLYCYSTIC OVARIES
     Dosage: UNK UNK, UNK
     Route: 048
     Dates: start: 20070501, end: 20091201

REACTIONS (11)
  - DEEP VEIN THROMBOSIS [None]
  - CHOLECYSTITIS CHRONIC [None]
  - MENTAL DISORDER [None]
  - MYOCARDIAL INFARCTION [None]
  - HYPERPLASTIC CHOLECYSTOPATHY [None]
  - GALLBLADDER DISORDER [None]
  - CHOLESTEROSIS [None]
  - PULMONARY EMBOLISM [None]
  - CEREBROVASCULAR ACCIDENT [None]
  - CHOLELITHIASIS [None]
  - GALLBLADDER POLYP [None]
